FAERS Safety Report 9840924 (Version 1)
Quarter: 2013Q4

REPORT INFORMATION
  Report Type: Spontaneous
  Country: US (occurrence: None)
  Receive Date: 20131219
  Receipt Date: 20131219
  Transmission Date: 20140711
  Serious: Yes (Hospitalization)
  Sender: FDA-Public Use
  Company Number: 163-20785-12093384

PATIENT
  Age: 71 Year
  Sex: Male

DRUGS (22)
  1. THALOMID [Suspect]
     Indication: PLASMA CELL MYELOMA
     Route: 048
     Dates: start: 20120605
  2. VENTOLIN (SALBUTAMOL) [Concomitant]
  3. METOPROLOL ER (METOPROLOL TARTRATE) [Concomitant]
  4. MORPHINE (MORPHINE) [Concomitant]
  5. LASIX (FUROSEMIDE) [Concomitant]
  6. LISINOPRIL (LISINOPRIL) [Concomitant]
  7. OXYCODONE (OXYCODONE) [Concomitant]
  8. FAMOTIDINE (FAMOTIDINE) [Concomitant]
  9. PROMETHAZINE (PROMETHAZINE) [Concomitant]
  10. FLUCONAZOLE (FLUCONAZOLE) [Concomitant]
  11. ACYCLOVIR (ACICLOVIR) [Concomitant]
  12. SULFAMETHOXAZOLE (SULFAMETHOXAZOLE) [Concomitant]
  13. WARFARIN (WARFARIN) [Concomitant]
  14. GABAPENTIN (GABAPENTIN) [Concomitant]
  15. PRAVASTATIN (PRAVASTATIN) [Concomitant]
  16. MULTIVITAMINS (MULTIVITAMINS) [Concomitant]
  17. FISH OIL (FISH OIL) [Concomitant]
  18. CALCIUM PLUS D3 (CALCIUM D3 ^STADA^) [Concomitant]
  19. POTASSIUM (POTASSIUM) [Concomitant]
  20. ISOSORBIDE MONONITRATE (ISOSORBIDE MONONITRATE) [Concomitant]
  21. ASPIRIN (ACETYLSLICYLIC ACID) [Concomitant]
  22. FLUIDS (I.V. SOLUTIONS) [Concomitant]

REACTIONS (3)
  - Atrial fibrillation [None]
  - Cardiac failure congestive [None]
  - Pneumonia [None]
